FAERS Safety Report 6791151-5 (Version None)
Quarter: 2010Q2

REPORT INFORMATION
  Report Type: 
  Country: None (occurrence: None)
  Receive Date: 20100623
  Receipt Date: 20100623
  Transmission Date: 20101027
  Serious: No
  Sender: FDA-Public Use
  Company Number: None

PATIENT
  Age: 7 Day
  Sex: Female
  Weight: 56.6996 kg

DRUGS (1)
  1. AVAPRO [Suspect]
     Indication: HYPERTENSION
     Dosage: 300MG ONCE A DAY PO
     Route: 048
     Dates: start: 20100613, end: 20100621

REACTIONS (10)
  - ABASIA [None]
  - APHAGIA [None]
  - BACK PAIN [None]
  - FATIGUE [None]
  - FEELING DRUNK [None]
  - IMPAIRED DRIVING ABILITY [None]
  - INSOMNIA [None]
  - UNEVALUABLE EVENT [None]
  - VERTIGO [None]
  - VISION BLURRED [None]
